FAERS Safety Report 9351918 (Version 1)
Quarter: 2013Q2

REPORT INFORMATION
  Report Type: Spontaneous
  Country: FR (occurrence: FR)
  Receive Date: 20130617
  Receipt Date: 20130617
  Transmission Date: 20140414
  Serious: Yes (Hospitalization)
  Sender: FDA-Public Use
  Company Number: FR-GLAXOSMITHKLINE-B0898755A

PATIENT
  Age: 57 Year
  Sex: Female

DRUGS (4)
  1. TROBALT [Suspect]
     Indication: PARTIAL SEIZURES
     Dosage: 300MG PER DAY
     Route: 048
     Dates: start: 20121121, end: 20130111
  2. PREVISCAN [Suspect]
     Indication: PULMONARY EMBOLISM
     Dosage: 20MG UNKNOWN
     Route: 048
     Dates: start: 2008, end: 20130111
  3. KEPPRA [Concomitant]
     Indication: PARTIAL SEIZURES
  4. EPITOMAX [Concomitant]
     Indication: PARTIAL SEIZURES
     Route: 065

REACTIONS (6)
  - Meningorrhagia [Recovered/Resolved]
  - Headache [Recovered/Resolved]
  - Gingival bleeding [Recovered/Resolved]
  - Cerebellar haemorrhage [Recovered/Resolved]
  - Nausea [Recovered/Resolved]
  - Vomiting [Recovered/Resolved]
